FAERS Safety Report 5085722-4 (Version None)
Quarter: 2006Q3

REPORT INFORMATION
  Report Type: 
  Country: None (occurrence: None)
  Receive Date: 20060822
  Receipt Date: 20060811
  Transmission Date: 20061208
  Serious: Yes (Life-Threatening)
  Sender: FDA-Public Use
  Company Number: FR-JNJFOC-20060802799

PATIENT
  Age: 68 Year
  Sex: Female

DRUGS (10)
  1. RISPERDAL [Suspect]
     Route: 048
  2. RISPERDAL [Suspect]
     Indication: DEPRESSION
     Route: 048
  3. MEPRONIZINE [Suspect]
     Route: 048
  4. MEPRONIZINE [Suspect]
     Indication: DEPRESSION
     Route: 048
  5. DOGMATIL [Suspect]
     Route: 048
  6. DOGMATIL [Suspect]
     Indication: DEPRESSION
     Route: 048
  7. IXEL [Suspect]
     Route: 048
  8. IXEL [Suspect]
     Indication: DEPRESSION
     Route: 048
  9. ATHYMIL [Suspect]
     Route: 048
  10. ATHYMIL [Suspect]
     Indication: DEPRESSION
     Route: 048

REACTIONS (3)
  - BUNDLE BRANCH BLOCK RIGHT [None]
  - DRUG TOXICITY [None]
  - PUPILS UNEQUAL [None]
